FAERS Safety Report 7985134-7 (Version None)
Quarter: 2011Q4

REPORT INFORMATION
  Report Type: 
  Country: None (occurrence: None)
  Receive Date: 20111216
  Receipt Date: 20111206
  Transmission Date: 20120403
  Serious: Yes (Hospitalization, Other)
  Sender: FDA-Public Use
  Company Number: PHEH2011US02706

PATIENT
  Sex: Male

DRUGS (1)
  1. EXJADE [Suspect]
     Dosage: 1500 MG, QD
     Route: 048

REACTIONS (5)
  - COLITIS ULCERATIVE [None]
  - DIARRHOEA [None]
  - CHROMATURIA [None]
  - ABDOMINAL PAIN UPPER [None]
  - SICKLE CELL ANAEMIA WITH CRISIS [None]
